FAERS Safety Report 20167534 (Version 1)
Quarter: 2021Q4

REPORT INFORMATION
  Report Type: Report from Study
  Country: US (occurrence: US)
  Receive Date: 20211209
  Receipt Date: 20211209
  Transmission Date: 20220303
  Serious: Yes (Hospitalization, Other)
  Sender: FDA-Public Use
  Company Number: US-ABBVIE-21K-163-4189284-00

PATIENT
  Sex: Male

DRUGS (7)
  1. VENCLEXTA [Suspect]
     Active Substance: VENETOCLAX
     Indication: Acute myeloid leukaemia
     Dosage: TAKE TWO 10 MG TABLET AND ONE 50 MG TABLET TOTAL OF 70 MG DAILY WITH FOOD
     Route: 048
     Dates: start: 20211124
  2. VENCLEXTA [Suspect]
     Active Substance: VENETOCLAX
     Route: 048
  3. TYLENOL [Concomitant]
     Active Substance: ACETAMINOPHEN
     Indication: Product used for unknown indication
     Route: 048
     Dates: start: 20191017
  4. PROVENTIL [Concomitant]
     Active Substance: ALBUTEROL
     Indication: Wheezing
     Route: 055
     Dates: start: 20211017
  5. CHONDROITIN;GLUCOSAMINE [Concomitant]
     Indication: Product used for unknown indication
     Route: 048
     Dates: start: 20190926
  6. HYDROCORTISONE [Concomitant]
     Active Substance: HYDROCORTISONE
     Indication: Product used for unknown indication
     Route: 046
     Dates: start: 20211112
  7. LOSARTAN [Concomitant]
     Active Substance: LOSARTAN
     Indication: Product used for unknown indication
     Route: 048
     Dates: start: 20211112

REACTIONS (7)
  - Hip arthroplasty [Unknown]
  - Hospitalisation [Unknown]
  - Procedural pain [Unknown]
  - Off label use [Unknown]
  - Rash [Unknown]
  - Blood test abnormal [Unknown]
  - Blood sodium decreased [Unknown]

NARRATIVE: CASE EVENT DATE: 20210101
